FAERS Safety Report 6496816-0 (Version None)
Quarter: 2009Q4

REPORT INFORMATION
  Report Type: 
  Country: None (occurrence: None)
  Receive Date: 20091125
  Receipt Date: 20090406
  Transmission Date: 20100525
  Serious: Yes (Hospitalization)
  Sender: FDA-Public Use
  Company Number: 2009BH005741

PATIENT
  Age: 69 Year
  Sex: Male

DRUGS (12)
  1. DIANEAL [Suspect]
     Indication: PERITONEAL DIALYSIS
     Dosage: 7 L; EVERY DAY; IP
     Route: 033
     Dates: start: 20080101
  2. EXTRANEAL [Suspect]
     Indication: PERITONEAL DIALYSIS
     Dosage: 2 L; EVERY DAY; IP
     Route: 033
     Dates: start: 20080101
  3. NPH INSULIN [Concomitant]
  4. INSULIN ASPART [Concomitant]
  5. SEVELAMER [Concomitant]
  6. PHOSPHATE BINDER [Concomitant]
  7. CARVEDILOL [Concomitant]
  8. METOLAZONE [Concomitant]
  9. CALCITRIOL [Concomitant]
  10. VALSARTAN [Concomitant]
  11. SIMVASTATIN [Concomitant]
  12. ASPIRIN [Concomitant]

REACTIONS (4)
  - DIARRHOEA [None]
  - INFLUENZA LIKE ILLNESS [None]
  - PERITONEAL DIALYSIS COMPLICATION [None]
  - PERITONITIS BACTERIAL [None]
